FAERS Safety Report 18645477 (Version 1)
Quarter: 2020Q4

REPORT INFORMATION
  Report Type: Spontaneous
  Country: TW (occurrence: TW)
  Receive Date: 20201221
  Receipt Date: 20201221
  Transmission Date: 20210114
  Serious: Yes (Death, Other)
  Sender: FDA-Public Use
  Company Number: TW-PFIZER INC-2020499898

PATIENT
  Age: 87 Year
  Sex: Male

DRUGS (1)
  1. XELJANZ [Suspect]
     Active Substance: TOFACITINIB CITRATE
     Indication: RHEUMATOID ARTHRITIS
     Dosage: 5 MG, BID
     Route: 048
     Dates: start: 20191121

REACTIONS (3)
  - Chest pain [Fatal]
  - Loss of consciousness [Fatal]
  - Chest discomfort [Fatal]

NARRATIVE: CASE EVENT DATE: 20201125
